FAERS Safety Report 8549649-5 (Version None)
Quarter: 2012Q3

REPORT INFORMATION
  Report Type: 
  Country: None (occurrence: None)
  Receive Date: 20120730
  Receipt Date: 20120720
  Transmission Date: 20120928
  Serious: Yes (Hospitalization, Other)
  Sender: FDA-Public Use
  Company Number: JP-VERTEX PHARMACEUTICALS INC.-AE-2012-008763

PATIENT
  Age: 55 Year
  Sex: Male

DRUGS (11)
  1. RIBAVIRIN [Concomitant]
     Route: 048
     Dates: start: 20120517
  2. ALLOPURINOL [Concomitant]
     Route: 048
  3. TELAVIC (TELAPREVIR) [Suspect]
     Indication: HEPATITIS C
     Route: 048
     Dates: start: 20120414, end: 20120509
  4. GASMOTIN [Concomitant]
     Route: 048
     Dates: start: 20120414
  5. OMEPRAZOLE [Concomitant]
     Route: 048
  6. SEDEKOPAN [Concomitant]
     Route: 048
  7. TOWART L [Concomitant]
     Route: 048
  8. RIBAVIRIN [Concomitant]
     Route: 048
     Dates: start: 20120414, end: 20120516
  9. RIBAVIRIN [Concomitant]
     Route: 048
     Dates: start: 20120609
  10. TELAVIC (TELAPREVIR) [Suspect]
     Route: 048
     Dates: start: 20120510
  11. PEGINTERFERON ALFA-2B [Concomitant]
     Route: 058
     Dates: start: 20120414

REACTIONS (3)
  - ERYTHEMA MULTIFORME [None]
  - DECREASED APPETITE [None]
  - RASH [None]
